FAERS Safety Report 7467117-9 (Version None)
Quarter: 2011Q2

REPORT INFORMATION
  Report Type: 
  Country: None (occurrence: None)
  Receive Date: 20110509
  Receipt Date: 20110329
  Transmission Date: 20111010
  Serious: Yes (Other)
  Sender: FDA-Public Use
  Company Number: US-BAYER-201028642NA

PATIENT
  Age: 42 Year
  Sex: Female
  Weight: 100 kg

DRUGS (6)
  1. YASMIN [Suspect]
     Indication: CONTRACEPTION
     Dosage: UNK
     Route: 048
     Dates: start: 20030101, end: 20080101
  2. DROSPIRENONE AND ETHINYL ESTRADIOL [Suspect]
     Dosage: UNK
     Dates: start: 20080101, end: 20090101
  3. VICODIN [Concomitant]
     Dosage: 5 MG, UNK
     Route: 048
     Dates: start: 20030101
  4. WELLBUTRIN [Concomitant]
     Dosage: 150 MG, UNK
     Route: 048
     Dates: start: 19980101
  5. ADVAIR DISKUS 100/50 [Concomitant]
     Dosage: UNK
     Route: 055
     Dates: start: 20000101
  6. ALBUTEROL [Concomitant]
     Dosage: UNK
     Route: 055
     Dates: start: 20000101

REACTIONS (8)
  - GALLBLADDER INJURY [None]
  - CHOLECYSTITIS CHRONIC [None]
  - BACK PAIN [None]
  - VOMITING [None]
  - CHOLELITHIASIS [None]
  - NAUSEA [None]
  - PANCREATITIS [None]
  - ABDOMINAL PAIN UPPER [None]
